FAERS Safety Report 17818282 (Version 1)
Quarter: 2020Q2

REPORT INFORMATION
  Report Type: Spontaneous
  Country: FR (occurrence: FR)
  Receive Date: 20200522
  Receipt Date: 20200522
  Transmission Date: 20200714
  Serious: Yes (Other)
  Sender: FDA-Public Use
  Company Number: FR-NAPPMUNDI-GBR-2020-0076795

PATIENT
  Age: 86 Year
  Sex: Male
  Weight: 78 kg

DRUGS (2)
  1. OXYCONTIN [Suspect]
     Active Substance: OXYCODONE HYDROCHLORIDE
     Indication: PAIN
     Dosage: 40 MG, DAILY (STRENGTH 20 MG)
     Route: 048
     Dates: start: 2019
  2. OXYNORM [Suspect]
     Active Substance: OXYCODONE HYDROCHLORIDE
     Indication: PAIN
     Dosage: 5 MG PRN (STRENGTH 5 MG)
     Route: 048
     Dates: start: 2019

REACTIONS (2)
  - Bladder dilatation [Recovered/Resolved]
  - Faecaloma [Recovered/Resolved]

NARRATIVE: CASE EVENT DATE: 20200318
